FAERS Safety Report 7865900-9 (Version None)
Quarter: 2011Q4

REPORT INFORMATION
  Report Type: 
  Country: None (occurrence: None)
  Receive Date: 20111028
  Receipt Date: 20110317
  Transmission Date: 20120403
  Serious: No
  Sender: FDA-Public Use
  Company Number: US-GLAXOSMITHKLINE-A0918680A

PATIENT
  Age: 68 Year
  Sex: Female

DRUGS (10)
  1. UNKNOWN MEDICATION [Concomitant]
  2. SERTRALINE HYDROCHLORIDE [Concomitant]
  3. AMLODIPINE BESYLATE AND BENAZEPRIL HCL [Concomitant]
  4. ADVAIR DISKUS 100/50 [Suspect]
     Indication: ASTHMA
     Dosage: 1PUFF TWICE PER DAY
     Route: 055
  5. CLARITIN [Concomitant]
  6. RANITIDINE [Concomitant]
  7. VENTOLIN [Concomitant]
  8. METOPROLOL TARTRATE [Concomitant]
  9. CYCLOBENZAPRIN [Concomitant]
  10. LOTRISONE [Concomitant]

REACTIONS (4)
  - CHEST PAIN [None]
  - INHALATION THERAPY [None]
  - PRODUCT QUALITY ISSUE [None]
  - DYSPNOEA [None]
